FAERS Safety Report 8838617 (Version 3)
Quarter: 2013Q1

REPORT INFORMATION
  Report Type: Spontaneous
  Country: US (occurrence: US)
  Receive Date: 20121012
  Receipt Date: 20130221
  Transmission Date: 20140127
  Serious: Yes (Other)
  Sender: FDA-Public Use
  Company Number: US-US-EMD SERONO, INC.-7165931

PATIENT
  Sex: Female
  Weight: 116 kg

DRUGS (18)
  1. REBIF [Suspect]
     Indication: RELAPSING-REMITTING MULTIPLE SCLEROSIS
     Route: 058
     Dates: start: 20090711
  2. ALPRAZOLAM [Concomitant]
     Route: 048
     Dates: start: 20110614
  3. BACLOFEN [Concomitant]
     Route: 048
     Dates: start: 20100421
  4. CALCIUM CITRATE [Concomitant]
     Route: 048
     Dates: start: 20101220
  5. CARBAMAZEPINE [Concomitant]
     Route: 046
     Dates: start: 20120220
  6. CLONIDINE [Concomitant]
     Route: 048
  7. CYMBALTA [Concomitant]
     Route: 048
     Dates: start: 20100617
  8. GABAPENTIN [Concomitant]
     Route: 048
     Dates: start: 20111110
  9. ZESTORETIC [Concomitant]
     Route: 048
     Dates: start: 20120208
  10. ZESTORETIC [Concomitant]
     Route: 048
     Dates: start: 20120113
  11. MELOXICAM [Concomitant]
     Dates: start: 20120921
  12. MISOPROSTOL [Concomitant]
     Route: 048
     Dates: start: 20101020
  13. NITROFURANTOIN [Concomitant]
     Route: 048
     Dates: start: 20120814
  14. OMEGA 3 FISH OIL [Concomitant]
     Route: 048
     Dates: start: 20101220
  15. PREDNISOLONE [Concomitant]
     Route: 047
     Dates: start: 20120605
  16. SIMVASTATIN [Concomitant]
     Route: 048
  17. TRIMETHOPRIM [Concomitant]
     Route: 048
     Dates: start: 20110810
  18. IBUPROFEN [Concomitant]
     Route: 048

REACTIONS (5)
  - Osteoarthritis [Unknown]
  - Cataract [Recovered/Resolved]
  - Oxygen saturation abnormal [Unknown]
  - Ear infection [Unknown]
  - Sinusitis [Unknown]
